FAERS Safety Report 6726275-1 (Version None)
Quarter: 2010Q2

REPORT INFORMATION
  Report Type: 
  Country: None (occurrence: None)
  Receive Date: 20100514
  Receipt Date: 20100507
  Transmission Date: 20101027
  Serious: Yes (Other)
  Sender: FDA-Public Use
  Company Number: B0651739A

PATIENT
  Age: 81 Year
  Sex: Female
  Weight: 85 kg

DRUGS (6)
  1. ALLI [Suspect]
     Dosage: 60MG THREE TIMES PER DAY
     Route: 065
  2. COMPETACT [Concomitant]
  3. GLIBENCLAMIDE [Concomitant]
  4. PRAVASTATIN [Concomitant]
  5. RAMIPRIL [Concomitant]
  6. UNKNOWN DRUG [Concomitant]

REACTIONS (5)
  - DIZZINESS [None]
  - HALLUCINATION [None]
  - HEADACHE [None]
  - HYPERHIDROSIS [None]
  - HYPOAESTHESIA [None]
